FAERS Safety Report 7487764-8 (Version None)
Quarter: 2011Q2

REPORT INFORMATION
  Report Type: 
  Country: None (occurrence: None)
  Receive Date: 20110518
  Receipt Date: 20110505
  Transmission Date: 20111010
  Serious: Yes (Hospitalization)
  Sender: FDA-Public Use
  Company Number: PHHY2011BE39530

PATIENT
  Age: 74 Year
  Sex: Female

DRUGS (10)
  1. ZOLEDRONIC ACID [Suspect]
     Dosage: 5 MG, UNK
     Route: 042
     Dates: start: 20110429
  2. LEVOTHYROXINE SODIUM [Concomitant]
  3. STAURODORM [Concomitant]
  4. ZOLEDRONIC ACID [Suspect]
     Dosage: 5 MG, UNK
     Route: 042
     Dates: start: 20100101
  5. ZOLEDRONIC ACID [Suspect]
     Indication: OSTEOPOROSIS POSTMENOPAUSAL
     Dosage: 5 MG, UNK
     Route: 042
     Dates: start: 20090101
  6. ANTIBIOTICS [Concomitant]
  7. VISKEN [Concomitant]
  8. DIVIVA [Concomitant]
  9. REMERGON [Concomitant]
  10. LIPITOR [Concomitant]

REACTIONS (7)
  - PYREXIA [None]
  - INFLAMMATION [None]
  - MOVEMENT DISORDER [None]
  - OROPHARYNGEAL PAIN [None]
  - MALAISE [None]
  - COUGH [None]
  - FATIGUE [None]
